FAERS Safety Report 25823775 (Version 1)
Quarter: 2025Q3

REPORT INFORMATION
  Report Type: Spontaneous
  Country: US (occurrence: None)
  Receive Date: 20250918
  Receipt Date: 20250918
  Transmission Date: 20251020
  Serious: Yes (Hospitalization)
  Sender: FDA-CTU
  Company Number: None

PATIENT
  Age: 62 Year
  Sex: Male

DRUGS (2)
  1. TAVNEOS [Suspect]
     Active Substance: AVACOPAN
     Dosage: FREQUENCY : TWICE A DAY;?
     Route: 048
     Dates: start: 20250826
  2. TAVNEOS [Concomitant]
     Active Substance: AVACOPAN
     Dates: start: 20250826

REACTIONS (2)
  - Hospitalisation [None]
  - Intentional dose omission [None]

NARRATIVE: CASE EVENT DATE: 20250918
